FAERS Safety Report 20782595 (Version 3)
Quarter: 2022Q2

REPORT INFORMATION
  Report Type: Spontaneous
  Country: BR (occurrence: BR)
  Receive Date: 20220504
  Receipt Date: 20220520
  Transmission Date: 20220721
  Serious: Yes (Other)
  Sender: FDA-Public Use
  Company Number: BR-NOVARTISPH-NVSC2022BR102140

PATIENT
  Sex: Male
  Weight: 82 kg

DRUGS (6)
  1. ENTRESTO [Suspect]
     Active Substance: SACUBITRIL\VALSARTAN
     Indication: Cardiac failure
     Dosage: 1 DOSAGE FORM, BID (ONE TABLET ORAL TWICE A DAY)
     Route: 048
     Dates: start: 2019
  2. SIMVASTATIN [Suspect]
     Active Substance: SIMVASTATIN
     Indication: Coronary artery disease
     Dosage: 40 MG, QD (ON TABLET IN THE EVENING)
     Route: 048
     Dates: start: 2019
  3. ALLOPURINOL [Suspect]
     Active Substance: ALLOPURINOL
     Indication: Product used for unknown indication
     Dosage: 100 MG, QD (1 TABLET DAILY)
     Route: 065
  4. WARFARIN SODIUM [Concomitant]
     Active Substance: WARFARIN SODIUM
     Indication: Aortic bypass
     Dosage: 5 MG (SECOND LAYOUT FREQUENTLY READJUSTABLE DOSAGE)
     Route: 048
     Dates: start: 2019
  5. GLIFAGE [Concomitant]
     Active Substance: METFORMIN HYDROCHLORIDE
     Indication: Diabetes mellitus management
     Dosage: 500 MG, BID
     Route: 065
     Dates: start: 2019
  6. BISOPROLOL [Concomitant]
     Active Substance: BISOPROLOL
     Indication: Myocardial infarction
     Dosage: 5 MG
     Route: 048
     Dates: start: 2019

REACTIONS (25)
  - Congestive cardiomyopathy [Unknown]
  - Cardiac failure [Unknown]
  - Aortic perforation [Unknown]
  - Mitral valve incompetence [Unknown]
  - Ventricular fibrillation [Unknown]
  - Ventricular septal defect [Unknown]
  - Ejection fraction decreased [Unknown]
  - Left atrial volume increased [Unknown]
  - Left ventricular enlargement [Unknown]
  - Hypokinesia [Unknown]
  - Systolic dysfunction [Unknown]
  - Left ventricular end-diastolic pressure increased [Unknown]
  - Electrocardiogram QRS complex [Unknown]
  - Heart rate decreased [Unknown]
  - Left atrial enlargement [Unknown]
  - Extrasystoles [Unknown]
  - Mobility decreased [Unknown]
  - Aortic valve disease [Unknown]
  - White blood cell disorder [Unknown]
  - Glycosylated haemoglobin decreased [Unknown]
  - Blood glucose increased [Unknown]
  - Blood sodium decreased [Unknown]
  - C-reactive protein decreased [Unknown]
  - Low density lipoprotein increased [Unknown]
  - Protein deficiency [Unknown]
